FAERS Safety Report 16020919 (Version 1)
Quarter: 2019Q1

REPORT INFORMATION
  Report Type: Other
  Country: CA (occurrence: CA)
  Receive Date: 20190301
  Receipt Date: 20190301
  Transmission Date: 20190418
  Serious: Yes (Other)
  Sender: FDA-Public Use
  Company Number: CA-APOTEX-2019AP008422

PATIENT
  Age: 37 Year
  Sex: Female

DRUGS (1)
  1. SALBUTAMOL [Suspect]
     Active Substance: ALBUTEROL
     Indication: PRODUCT USED FOR UNKNOWN INDICATION
     Dosage: 200 MG, UNK
     Route: 065

REACTIONS (15)
  - Hypersensitivity [Unknown]
  - Nasopharyngitis [Unknown]
  - Pneumothorax [Unknown]
  - Bacterial infection [Unknown]
  - Upper respiratory tract infection [Unknown]
  - Peripheral swelling [Unknown]
  - Thrombosis [Unknown]
  - Lower respiratory tract infection [Unknown]
  - Muscle spasms [Unknown]
  - Sinusitis [Unknown]
  - Nasal congestion [Unknown]
  - Scar [Unknown]
  - Cardiovascular disorder [Unknown]
  - Muscular weakness [Unknown]
  - Vitamin B12 decreased [Unknown]
